FAERS Safety Report 8861565 (Version 1)
Quarter: 2012Q4

REPORT INFORMATION
  Report Type: 
  Country: US (occurrence: US)
  Receive Date: 20121025
  Receipt Date: 20121025
  Transmission Date: 20130627
  Serious: No
  Sender: FDA-Public Use
  Company Number: US-AMGEN-USASP2012016987

PATIENT
  Age: 35 Year
  Sex: Female

DRUGS (3)
  1. ENBREL [Suspect]
     Indication: PRODUCT USED FOR UNKNOWN INDICATION
     Dosage: 50 mg, 2 times/wk
     Route: 058
  2. FOLIC ACID [Concomitant]
     Dosage: 400 mug, UNK
  3. ALBUTEROL                          /00139501/ [Concomitant]
     Dosage: 90 mug, UNK

REACTIONS (1)
  - Cellulitis [Unknown]
